FAERS Safety Report 11333035 (Version 1)
Quarter: 2015Q3

REPORT INFORMATION
  Report Type: Spontaneous
  Country: US (occurrence: US)
  Receive Date: 20150803
  Receipt Date: 20150803
  Transmission Date: 20151125
  Serious: No
  Sender: FDA-Public Use
  Company Number: US-ELI_LILLY_AND_COMPANY-US200604004577

PATIENT
  Age: 46 Year
  Sex: Male
  Weight: 79.37 kg

DRUGS (5)
  1. LANSOPRAZOLE. [Concomitant]
     Active Substance: LANSOPRAZOLE
     Indication: GASTROOESOPHAGEAL REFLUX DISEASE
     Dosage: 30 MG, 2/D
  2. ZYPREXA [Suspect]
     Active Substance: OLANZAPINE
     Dosage: 10 MG, 2/D
     Dates: start: 20040603
  3. ZOLPIDEM TARTRATE. [Concomitant]
     Active Substance: ZOLPIDEM TARTRATE
     Indication: INSOMNIA
     Dosage: 10 MG, UNK
  4. SILDENAFIL CITRATE. [Concomitant]
     Active Substance: SILDENAFIL CITRATE
     Indication: ERECTILE DYSFUNCTION
     Dosage: 50 MG, AS NEEDED
     Dates: start: 20031002
  5. ZYPREXA [Suspect]
     Active Substance: OLANZAPINE
     Indication: MIGRAINE
     Dosage: 7.5 MG, 2/D
     Dates: start: 20031006, end: 20060715

REACTIONS (4)
  - Nervousness [Unknown]
  - Diabetes mellitus [Not Recovered/Not Resolved]
  - Deformity [Unknown]
  - Metabolic syndrome [Unknown]

NARRATIVE: CASE EVENT DATE: 20050719
